FAERS Safety Report 9234757 (Version 2)
Quarter: 2016Q3

REPORT INFORMATION
  Report Type: Spontaneous
  Country: US (occurrence: US)
  Receive Date: 20130416
  Receipt Date: 20160915
  Transmission Date: 20161109
  Serious: No
  Sender: FDA-Public Use
  Company Number: US-PFIZER INC-2013116414

PATIENT
  Age: 71 Year
  Sex: Female

DRUGS (1)
  1. SERTRALINE HCL [Suspect]
     Active Substance: SERTRALINE HYDROCHLORIDE
     Dosage: UNK
     Dates: start: 2005

REACTIONS (4)
  - Anxiety [Unknown]
  - Drug intolerance [Unknown]
  - Asthenia [Unknown]
  - Feeling abnormal [Unknown]
